FAERS Safety Report 7125147-0 (Version None)
Quarter: 2011Q1

REPORT INFORMATION
  Report Type: 
  Country: None (occurrence: None)
  Receive Date: 20101101
  Receipt Date: 20101105
  Transmission Date: 20110831
  Serious: Yes (Hospitalization, Other)
  Sender: FDA-Public Use
  Company Number: WAES 1010USA02395

PATIENT
  Age: 62 Year
  Sex: Female
  Weight: 47.6277 kg

DRUGS (8)
  1. FOSAMAX [Suspect]
     Indication: OSTEOPOROSIS
     Dosage: 35 MG/WKY/PO
     Route: 048
     Dates: start: 20070315
  2. BUFFERIN [Suspect]
     Indication: THROMBOSIS PROPHYLAXIS
     Dosage: 81 MG/DAILY/PO
     Route: 048
     Dates: start: 20040124
  3. KETOPROFEN [Concomitant]
  4. CALSLOT [Suspect]
     Indication: HYPERTENSION
     Dosage: 10 MG/DAILY/PO
     Route: 048
     Dates: start: 20040124
  5. METHOTREXATE SODIUM [Suspect]
     Indication: RHEUMATOID ARTHRITIS
     Dosage: 12.5 MG/WKY/PO
     Route: 048
     Dates: start: 20060707
  6. FLUCAM [Suspect]
     Indication: RHEUMATOID ARTHRITIS
     Dosage: 27 MG/DAILY/PO
     Route: 048
     Dates: start: 20040124
  7. THERAPY UNSPECIFIED [Suspect]
     Indication: RHEUMATOID ARTHRITIS
     Dosage: 5 MG/BID/PO
     Route: 048
     Dates: start: 20080826, end: 20100620
  8. FOLIC ACID [Suspect]
     Indication: RHEUMATOID ARTHRITIS
     Dosage: 5 MG/WKY/PO
     Route: 048
     Dates: start: 20060113

REACTIONS (6)
  - CONVULSION [None]
  - SNORING [None]
  - LOSS OF CONSCIOUSNESS [None]
  - FALL [None]
  - FEELING ABNORMAL [None]
  - SUDDEN HEARING LOSS [None]
